FAERS Safety Report 18835018 (Version 3)
Quarter: 2021Q1

REPORT INFORMATION
  Report Type: Report from Study
  Country: US (occurrence: US)
  Receive Date: 20210203
  Receipt Date: 20210315
  Transmission Date: 20210419
  Serious: Yes (Hospitalization, Other)
  Sender: FDA-Public Use
  Company Number: US-SECURA BIO, INC.-2021US000731

PATIENT

DRUGS (7)
  1. DIFLUCAN [Concomitant]
     Active Substance: FLUCONAZOLE
     Indication: CANDIDA INFECTION
     Route: 065
  2. FARYDAK [Suspect]
     Active Substance: PANOBINOSTAT
     Dosage: 4 PILLS ON M, W, F
     Route: 048
     Dates: end: 20210310
  3. FARYDAK [Suspect]
     Active Substance: PANOBINOSTAT
     Dosage: 40 MG
     Route: 048
     Dates: start: 20210201
  4. FARYDAK [Suspect]
     Active Substance: PANOBINOSTAT
     Dosage: 50 MG
     Route: 048
     Dates: start: 20210113
  5. FARYDAK [Suspect]
     Active Substance: PANOBINOSTAT
     Dosage: 40 MG
     Route: 048
     Dates: start: 20210130
  6. FARYDAK [Suspect]
     Active Substance: PANOBINOSTAT
     Indication: BRAIN NEOPLASM MALIGNANT
     Dosage: UNK
     Route: 048
     Dates: start: 20201215
  7. FARYDAK [Suspect]
     Active Substance: PANOBINOSTAT
     Dosage: 40 MG
     Route: 048
     Dates: start: 20210128

REACTIONS (8)
  - Diabetes insipidus [Unknown]
  - Hypotension [Recovering/Resolving]
  - Hypothyroidism [Unknown]
  - Constipation [Recovered/Resolved]
  - Inappropriate schedule of product administration [Unknown]
  - Adrenal insufficiency [Recovering/Resolving]
  - Off label use [Unknown]
  - Hepatic enzyme increased [Unknown]

NARRATIVE: CASE EVENT DATE: 20210118
